APPROVED DRUG PRODUCT: ORTHO TRI-CYCLEN
Active Ingredient: ETHINYL ESTRADIOL; NORGESTIMATE
Strength: 0.035MG,0.035MG,0.035MG;0.18MG,0.215MG,0.25MG **Federal Register determination that product was not discontinued or withdrawn for safety or effectiveness reasons**
Dosage Form/Route: TABLET;ORAL-21
Application: N019697 | Product #002
Applicant: JANSSEN PHARMACEUTICALS INC
Approved: Jul 3, 1992 | RLD: No | RS: No | Type: DISCN